FAERS Safety Report 4290533-3 (Version None)
Quarter: 2004Q1

REPORT INFORMATION
  Report Type: 
  Country: None (occurrence: None)
  Receive Date: 20040209
  Receipt Date: 20040120
  Transmission Date: 20041129
  Serious: Yes (Hospitalization)
  Sender: FDA-Public Use
  Company Number: WAES 0309USA03029

PATIENT
  Age: 67 Year
  Sex: Female

DRUGS (7)
  1. ZOCOR [Suspect]
     Indication: HYPERLIPIDAEMIA
     Dosage: 5 MG/DAILY
     Route: 048
     Dates: start: 19930614, end: 19990730
  2. COZAAR [Concomitant]
  3. AMLODIPINE MALEATE [Concomitant]
  4. ETIZOLAM [Concomitant]
  5. KALLIKREIN [Concomitant]
  6. NICARDIPINE HCL [Concomitant]
  7. PENTOXIFYLLINE [Concomitant]

REACTIONS (1)
  - CEREBRAL INFARCTION [None]
